FAERS Safety Report 18055159 (Version 1)
Quarter: 2020Q3

REPORT INFORMATION
  Report Type: Spontaneous
  Country: US (occurrence: US)
  Receive Date: 20200722
  Receipt Date: 20200722
  Transmission Date: 20201103
  Serious: Yes (Other)
  Sender: FDA-Public Use
  Company Number: US-ACCORD-176029

PATIENT
  Sex: Female
  Weight: 58.97 kg

DRUGS (1)
  1. AMITRIPTYLINE [Suspect]
     Active Substance: AMITRIPTYLINE
     Indication: NEUROPATHY PERIPHERAL
     Dosage: DOSE REDUCED TO 10 MG AT BED TIME
     Dates: start: 202001

REACTIONS (9)
  - Cerebrovascular accident [Unknown]
  - Hallucination [Unknown]
  - Somnolence [Unknown]
  - Lethargy [Unknown]
  - Speech disorder [Unknown]
  - Vertigo [Unknown]
  - Malaise [Unknown]
  - Feeling abnormal [Unknown]
  - Off label use [Unknown]
